FAERS Safety Report 9017528 (Version 1)
Quarter: 2013Q1

REPORT INFORMATION
  Report Type: Spontaneous
  Country: IN (occurrence: IN)
  Receive Date: 20130117
  Receipt Date: 20130117
  Transmission Date: 20140127
  Serious: Yes (Other)
  Sender: FDA-Public Use
  Company Number: IN-PFIZER INC-2013014667

PATIENT
  Age: 54 Year
  Sex: Male

DRUGS (1)
  1. LINEZOLID [Suspect]
     Indication: URINARY TRACT INFECTION ENTEROCOCCAL
     Dosage: 600 MG, 2X/DAY

REACTIONS (2)
  - Tubulointerstitial nephritis [Recovering/Resolving]
  - Drug reaction with eosinophilia and systemic symptoms [Recovering/Resolving]
